FAERS Safety Report 5782601-1 (Version None)
Quarter: 2008Q2

REPORT INFORMATION
  Report Type: 
  Country: None (occurrence: None)
  Receive Date: 20080624
  Receipt Date: 20080613
  Transmission Date: 20081010
  Serious: Yes (Other)
  Sender: FDA-Public Use
  Company Number: JP-PFIZER INC-2008050357

PATIENT
  Age: 71 Year
  Sex: Male

DRUGS (1)
  1. CARDENALIN [Suspect]
     Dosage: DAILY DOSE:1MG
     Route: 048
     Dates: start: 20080516, end: 20080613

REACTIONS (5)
  - DROOLING [None]
  - MUSCULAR WEAKNESS [None]
  - PRURITUS GENERALISED [None]
  - URINARY INCONTINENCE [None]
  - VISUAL ACUITY REDUCED [None]
